FAERS Safety Report 24431611 (Version 1)
Quarter: 2024Q4

REPORT INFORMATION
  Report Type: Spontaneous
  Country: US (occurrence: US)
  Receive Date: 20241014
  Receipt Date: 20241014
  Transmission Date: 20250114
  Serious: No
  Sender: NOVARTIS
  Company Number: US-002147023-NVSC2024US200490

PATIENT
  Sex: Male

DRUGS (2)
  1. PLUVICTO [Suspect]
     Active Substance: LUTETIUM LU-177 VIPIVOTIDE TETRAXETAN
     Indication: Prostate cancer metastatic
     Dosage: 160 % (VIAL) (EVERY 6 WEEKS FOR 36 WEEKS 6 TOTAL DOSES)
     Route: 042
  2. PLUVICTO [Suspect]
     Active Substance: LUTETIUM LU-177 VIPIVOTIDE TETRAXETAN
     Dosage: 160 MCI (EVERY 6 WEEKS FOR 36 WEEKS 6 TOTAL DOSES)
     Route: 042

REACTIONS (1)
  - Fatigue [Unknown]
